FAERS Safety Report 10504038 (Version 2)
Quarter: 2014Q4

REPORT INFORMATION
  Report Type: Spontaneous
  Country: US (occurrence: US)
  Receive Date: 20141008
  Receipt Date: 20141008
  Transmission Date: 20150528
  Serious: No
  Sender: FDA-Public Use
  Company Number: US-BEH-2013037346

PATIENT
  Age: 49 Year
  Sex: Male
  Weight: 85 kg

DRUGS (29)
  1. COENZYME [Concomitant]
  2. ACETAMINOPHEN. [Concomitant]
     Active Substance: ACETAMINOPHEN
  3. ASPIRIN. [Concomitant]
     Active Substance: ASPIRIN
  4. PREDNISONE. [Concomitant]
     Active Substance: PREDNISONE
  5. MAGNESIUM GLYCINATE [Concomitant]
     Active Substance: MAGNESIUM GLYCINATE
  6. EPIPEN [Concomitant]
     Active Substance: EPINEPHRINE
  7. ZYRTEC [Concomitant]
     Active Substance: CETIRIZINE HYDROCHLORIDE
  8. FISH OIL [Concomitant]
     Active Substance: FISH OIL
  9. COENZYME Q10 [Concomitant]
     Active Substance: UBIDECARENONE
  10. DIAZEPAM. [Concomitant]
     Active Substance: DIAZEPAM
  11. SODIUM CHLORIDE. [Concomitant]
     Active Substance: SODIUM CHLORIDE
  12. NASONEX [Concomitant]
     Active Substance: MOMETASONE FUROATE
  13. VITAMIN D [Concomitant]
     Active Substance: CHOLECALCIFEROL
  14. FLOVENT [Concomitant]
     Active Substance: FLUTICASONE PROPIONATE
  15. ALBUTEROL. [Concomitant]
     Active Substance: ALBUTEROL
  16. MULTIVITAMIN [Concomitant]
     Active Substance: VITAMINS
  17. ALL OTHER THERAPEUTIC PRODUCTS [Concomitant]
     Active Substance: UNSPECIFIED INGREDIENT
  18. WELLBUTRIN [Concomitant]
     Active Substance: BUPROPION HYDROCHLORIDE
  19. ALL OTHER NON-THERAPEUTIC PRODUCTS [Concomitant]
     Active Substance: UNSPECIFIED INGREDIENT
  20. LEVAQUIN [Concomitant]
     Active Substance: LEVOFLOXACIN
  21. VICODIN [Concomitant]
     Active Substance: ACETAMINOPHEN\HYDROCODONE BITARTRATE
  22. ATROVENT [Concomitant]
     Active Substance: IPRATROPIUM BROMIDE
  23. AVELOX [Concomitant]
     Active Substance: MOXIFLOXACIN HYDROCHLORIDE
  24. PRIVIGEN [Suspect]
     Active Substance: HUMAN IMMUNOGLOBULIN G
     Indication: HYPOGLOBULINAEMIA
     Dosage: 10 GM VIAL AND 20 GM VIAL
     Route: 042
  25. CLONIDINE. [Concomitant]
     Active Substance: CLONIDINE
  26. DIPHENHYDRAMINE [Concomitant]
     Active Substance: DIPHENHYDRAMINE
  27. SINGULAIR [Concomitant]
     Active Substance: MONTELUKAST SODIUM
  28. PRIVIGEN [Suspect]
     Active Substance: HUMAN IMMUNOGLOBULIN G
     Indication: IMMUNODEFICIENCY COMMON VARIABLE
     Route: 042
  29. ACETYLCYSTEINE. [Concomitant]
     Active Substance: ACETYLCYSTEINE

REACTIONS (9)
  - Sinusitis [Unknown]
  - Eye infection [Unknown]
  - Pharyngitis [Unknown]
  - Eye infection [Unknown]
  - Rhinitis [Unknown]
  - Rhinitis [Unknown]
  - Ear infection [Unknown]
  - Ear infection [Unknown]
  - Pharyngitis [Unknown]

NARRATIVE: CASE EVENT DATE: 20131208
